FAERS Safety Report 20724547 (Version 1)
Quarter: 2022Q2

REPORT INFORMATION
  Report Type: Spontaneous
  Country: AU (occurrence: AU)
  Receive Date: 20220419
  Receipt Date: 20220419
  Transmission Date: 20220721
  Serious: Yes (Hospitalization)
  Sender: FDA-Public Use
  Company Number: AU-TASMAN PHARMA, INC.-2022TSM00060

PATIENT
  Sex: Male

DRUGS (3)
  1. CLOZAPINE [Suspect]
     Active Substance: CLOZAPINE
     Dosage: 300 MG
     Dates: start: 20220311, end: 20220314
  2. CLOZAPINE [Suspect]
     Active Substance: CLOZAPINE
     Dosage: 300 MG
     Dates: start: 20220315, end: 20220317
  3. CLOZAPINE [Suspect]
     Active Substance: CLOZAPINE
     Dosage: 300 MG
     Dates: start: 20220318

REACTIONS (1)
  - Antipsychotic drug level increased [Not Recovered/Not Resolved]

NARRATIVE: CASE EVENT DATE: 20220407
